FAERS Safety Report 8997953 (Version 1)
Quarter: 2013Q1

REPORT INFORMATION
  Report Type: Report from Study
  Country: US (occurrence: US)
  Receive Date: 20130104
  Receipt Date: 20130104
  Transmission Date: 20140127
  Serious: Yes (Death)
  Sender: FDA-Public Use
  Company Number: US-ROCHE-1169734

PATIENT
  Sex: Female

DRUGS (2)
  1. CAPECITABINE [Suspect]
     Indication: NEOPLASM MALIGNANT
     Route: 065
  2. TYKERB [Concomitant]

REACTIONS (4)
  - Metastatic neoplasm [Fatal]
  - Disease progression [Fatal]
  - Diarrhoea [Unknown]
  - Weight decreased [Unknown]
